FAERS Safety Report 15796779 (Version 2)
Quarter: 2019Q1

REPORT INFORMATION
  Report Type: Spontaneous
  Country: US (occurrence: US)
  Receive Date: 20190108
  Receipt Date: 20190111
  Transmission Date: 20190417
  Serious: No
  Sender: FDA-Public Use
  Company Number: US-BIOGEN-2018BI00676783

PATIENT
  Age: 44 Year
  Sex: Female

DRUGS (1)
  1. TECFIDERA [Suspect]
     Active Substance: DIMETHYL FUMARATE
     Indication: MULTIPLE SCLEROSIS
     Route: 065
     Dates: start: 20181116

REACTIONS (4)
  - Urinary tract infection [Unknown]
  - Drug effect decreased [Unknown]
  - Feeling abnormal [Unknown]
  - Panic reaction [Not Recovered/Not Resolved]

NARRATIVE: CASE EVENT DATE: 20181226
